FAERS Safety Report 5824019-9 (Version None)
Quarter: 2008Q3

REPORT INFORMATION
  Report Type: 
  Country: None (occurrence: None)
  Receive Date: 20080728
  Receipt Date: 20080722
  Transmission Date: 20090109
  Serious: Yes (Death)
  Sender: FDA-Public Use
  Company Number: FR-JNJFOC-20080705531

PATIENT
  Age: 73 Year
  Sex: Female

DRUGS (1)
  1. CLADRIBINE [Suspect]
     Indication: IMMUNOBLASTIC LYMPHOMA
     Route: 065

REACTIONS (1)
  - LYMPHOMA [None]
